FAERS Safety Report 14540145 (Version 1)
Quarter: 2018Q1

REPORT INFORMATION
  Report Type: Spontaneous
  Country: GB (occurrence: GB)
  Receive Date: 20180216
  Receipt Date: 20180216
  Transmission Date: 20180509
  Serious: Yes (Other)
  Sender: FDA-Public Use
  Company Number: GB-TEVA-2018-GB-858483

PATIENT
  Age: 25 Year
  Sex: Male
  Weight: 111.13 kg

DRUGS (1)
  1. ACTAVIS GROUP PTC FINASTERIDE [Suspect]
     Active Substance: FINASTERIDE
     Indication: ALOPECIA
     Dosage: 1 DOSAGE FORMS DAILY;
     Route: 048
     Dates: start: 20170602

REACTIONS (2)
  - Erectile dysfunction [Not Recovered/Not Resolved]
  - Penile size reduced [Unknown]

NARRATIVE: CASE EVENT DATE: 20171015
